FAERS Safety Report 23353794 (Version 1)
Quarter: 2024Q1

REPORT INFORMATION
  Report Type: Spontaneous
  Country: IT (occurrence: IT)
  Receive Date: 20240101
  Receipt Date: 20240101
  Transmission Date: 20240410
  Serious: Yes (Other)
  Sender: FDA-Public Use
  Company Number: IT-MINISAL02-961325

PATIENT
  Age: 61 Year
  Sex: Male

DRUGS (2)
  1. CIPROFLOXACIN [Suspect]
     Active Substance: CIPROFLOXACIN
     Indication: Bronchitis
     Dosage: 500 MILLIGRAM, TWO TIMES A DAY (CIPROFLOXACINA 500MG 1 C. DOPO COLAZIONE E CENA (OGNI 12 ORE, DOPO I
     Route: 048
     Dates: start: 20231124, end: 20231125
  2. LOBIDIUR [Concomitant]
     Active Substance: HYDROCHLOROTHIAZIDE\NEBIVOLOL HYDROCHLORIDE
     Indication: Product used for unknown indication
     Dosage: UNK, ONCE A DAY (LOBIDIUR 1 C./DIE)
     Route: 065

REACTIONS (4)
  - Haematemesis [Recovered/Resolved]
  - Melaena [Recovered/Resolved]
  - Pallor [Recovered/Resolved]
  - Asthenia [Recovered/Resolved]

NARRATIVE: CASE EVENT DATE: 20231125
